FAERS Safety Report 10101709 (Version 2)
Quarter: 2014Q2

REPORT INFORMATION
  Report Type: Spontaneous
  Country: US (occurrence: None)
  Receive Date: 20140418
  Receipt Date: 20140509
  Transmission Date: 20141212
  Serious: Yes (Hospitalization, Disabling)
  Sender: FDA-Public Use
  Company Number: UTC-046409

PATIENT
  Age: 60 Year
  Sex: Female

DRUGS (2)
  1. REMODULIN (2.5 MILLIGRAM/MILLILITERS, INJECTION FOR INFUSION) (TREPROSTINIL SODIUM) [Suspect]
     Indication: COR PULMONALE CHRONIC
     Dosage: (0.013 UG/KG, 1 IN 1 MIN)
     Route: 058
     Dates: start: 20140107
  2. LETAIRIS (AMBRISENTAN) [Concomitant]

REACTIONS (10)
  - Abdominal pain [None]
  - Nausea [None]
  - Vomiting [None]
  - Abdominal distension [None]
  - Dyspnoea [None]
  - Renal impairment [None]
  - Hepatic encephalopathy [None]
  - Respiratory failure [None]
  - Malaise [None]
  - Infusion site erythema [None]
